FAERS Safety Report 5788330-2 (Version None)
Quarter: 2008Q2

REPORT INFORMATION
  Report Type: 
  Country: None (occurrence: None)
  Receive Date: 20080625
  Receipt Date: 20080613
  Transmission Date: 20081010
  Serious: Yes (Hospitalization)
  Sender: FDA-Public Use
  Company Number: FR-PFIZER INC-2008049762

PATIENT
  Age: 53 Year
  Sex: Male

DRUGS (9)
  1. CEFPODOXIME PROXETIL [Suspect]
     Indication: BRONCHITIS
     Dosage: DAILY DOSE:400MG
     Route: 048
  2. ACETAMINOPHEN [Suspect]
     Route: 048
  3. PREVISCAN [Suspect]
     Route: 048
  4. PREVISCAN [Suspect]
  5. CORDARONE [Concomitant]
     Route: 048
  6. DIGOXIN [Concomitant]
     Route: 048
  7. CISPLATIN [Concomitant]
  8. FLUOROURACIL [Concomitant]
  9. TAXOTERE [Concomitant]

REACTIONS (3)
  - EPISTAXIS [None]
  - INTERNATIONAL NORMALISED RATIO INCREASED [None]
  - OVERDOSE [None]
